FAERS Safety Report 8815279 (Version 3)
Quarter: 2012Q4

REPORT INFORMATION
  Report Type: 
  Country: US (occurrence: US)
  Receive Date: 20120928
  Receipt Date: 20121114
  Transmission Date: 20130627
  Serious: Yes (Hospitalization, Other)
  Sender: FDA-Public Use
  Company Number: US-ASTRAZENECA-2012SE73558

PATIENT
  Age: 29730 Day
  Sex: Female

DRUGS (4)
  1. CRESTOR [Suspect]
     Dosage: AT NIGHT
     Route: 048
     Dates: start: 2009, end: 201209
  2. LISINOPRIL [Suspect]
     Indication: BLOOD PRESSURE
     Dosage: AS REQUIRED
     Route: 048
  3. OTHER MEDICATIONS [Suspect]
     Route: 065
  4. FISH OIL [Concomitant]

REACTIONS (10)
  - Fall [Unknown]
  - Rib fracture [Unknown]
  - Sternal fracture [Unknown]
  - Chronic obstructive pulmonary disease [Unknown]
  - Adverse event [Unknown]
  - Generalised oedema [Unknown]
  - Cardiac disorder [Unknown]
  - Blood cholesterol increased [Unknown]
  - Dizziness [Unknown]
  - Intentional drug misuse [Unknown]
